FAERS Safety Report 12853865 (Version 1)
Quarter: 2016Q4

REPORT INFORMATION
  Report Type: Spontaneous
  Country: AU (occurrence: AU)
  Receive Date: 20161017
  Receipt Date: 20161017
  Transmission Date: 20170207
  Serious: Yes (Other)
  Sender: FDA-Public Use
  Company Number: AU-CIPLA LTD.-2016CA19350

PATIENT

DRUGS (3)
  1. RITONAVIR. [Suspect]
     Active Substance: RITONAVIR
     Indication: ANTIRETROVIRAL THERAPY
     Dosage: 200 MG, DAILY
     Route: 065
  2. BUDESONIDE. [Suspect]
     Active Substance: BUDESONIDE
     Dosage: 400 MCG, BID
  3. FLUTICASONE [Interacting]
     Active Substance: FLUTICASONE\FLUTICASONE PROPIONATE
     Dosage: 1000 ?G, DAILY

REACTIONS (4)
  - Fracture [Unknown]
  - Cushing^s syndrome [Recovering/Resolving]
  - Drug interaction [Unknown]
  - Adrenal suppression [Recovering/Resolving]
